FAERS Safety Report 6822766-3 (Version None)
Quarter: 2010Q3

REPORT INFORMATION
  Report Type: 
  Country: None (occurrence: None)
  Receive Date: 20100708
  Receipt Date: 20100624
  Transmission Date: 20110219
  Serious: Yes (Other)
  Sender: FDA-Public Use
  Company Number: CA-ROCHE-711895

PATIENT
  Age: 16 Year
  Sex: Male

DRUGS (1)
  1. ACCUTANE [Suspect]
     Route: 065

REACTIONS (11)
  - ALOPECIA [None]
  - ANXIETY [None]
  - DEPRESSION [None]
  - DRY EYE [None]
  - IRRITABLE BOWEL SYNDROME [None]
  - LIP SWELLING [None]
  - OCULAR HYPERAEMIA [None]
  - PAIN [None]
  - PSORIASIS [None]
  - SCAR [None]
  - SKIN ULCER [None]
